FAERS Safety Report 10051493 (Version 2)
Quarter: 2014Q4

REPORT INFORMATION
  Report Type: Spontaneous
  Country: US (occurrence: None)
  Receive Date: 20140328
  Receipt Date: 20141106
  Transmission Date: 20150528
  Serious: Yes (Disabling, Other)
  Sender: FDA-Public Use
  Company Number: 2014-US-003338

PATIENT
  Age: 60 Year
  Sex: Female
  Weight: 41.3 kg

DRUGS (4)
  1. TRAZODONE [Concomitant]
     Active Substance: TRAZODONE HYDROCHLORIDE
  2. CELLCEPT [Concomitant]
     Active Substance: MYCOPHENOLATE MOFETIL\MYCOPHENOLATE MOFETIL HYDROCHLORIDE
  3. XYREM [Suspect]
     Active Substance: SODIUM OXYBATE
     Indication: SLEEP DISORDER
     Route: 048
     Dates: start: 200505
  4. KLONOPIN [Concomitant]
     Active Substance: CLONAZEPAM

REACTIONS (12)
  - Temporomandibular joint syndrome [None]
  - Therapeutic response decreased [None]
  - Off label use [None]
  - Condition aggravated [None]
  - Illusion [None]
  - Vitamin D deficiency [None]
  - Weight decreased [None]
  - Hallucination [None]
  - Insomnia [None]
  - Thinking abnormal [None]
  - Daydreaming [None]
  - Decreased appetite [None]

NARRATIVE: CASE EVENT DATE: 2005
